FAERS Safety Report 4824832-0 (Version None)
Quarter: 2005Q4

REPORT INFORMATION
  Report Type: 
  Country: None (occurrence: None)
  Receive Date: 20051014
  Receipt Date: 20050627
  Transmission Date: 20060501
  Serious: No
  Sender: FDA-Public Use
  Company Number: 2005SP001627

PATIENT
  Age: 68 Year
  Sex: Male
  Weight: 97.977 kg

DRUGS (3)
  1. LUNESTA [Suspect]
     Dosage: 3 MG;1X;ORAL, 3 MG;ORAL
     Route: 048
     Dates: start: 20050622, end: 20050622
  2. LUNESTA [Suspect]
     Dosage: 3 MG;1X;ORAL, 3 MG;ORAL
     Route: 048
     Dates: start: 20050626
  3. AMBIEN [Concomitant]

REACTIONS (1)
  - DYSGEUSIA [None]
